FAERS Safety Report 5698565-5 (Version None)
Quarter: 2008Q2

REPORT INFORMATION
  Report Type: 
  Country: None (occurrence: None)
  Receive Date: 20080408
  Receipt Date: 20070511
  Transmission Date: 20081010
  Serious: Yes (Other)
  Sender: FDA-Public Use
  Company Number: US-BAYER-US-2006-026181

PATIENT
  Age: 53 Year
  Sex: Female
  Weight: 57 kg

DRUGS (9)
  1. CLIMARA [Suspect]
     Indication: MENOPAUSAL SYMPTOMS
     Route: 062
  2. PREMARIN [Suspect]
     Indication: MENOPAUSAL SYMPTOMS
  3. ESTRATEST [Suspect]
     Indication: MENOPAUSAL SYMPTOMS
  4. PROVERA [Suspect]
     Indication: MENOPAUSAL SYMPTOMS
  5. ESTRACE [Suspect]
     Indication: MENOPAUSAL SYMPTOMS
  6. ESTRADIOL [Suspect]
     Indication: MENOPAUSAL SYMPTOMS
  7. PROGESTERONE [Suspect]
     Indication: MENOPAUSAL SYMPTOMS
     Route: 050
  8. OGEN [Suspect]
  9. PLENDIL [Concomitant]
     Indication: HYPERTENSION

REACTIONS (4)
  - BREAST CANCER FEMALE [None]
  - BREAST HYPERPLASIA [None]
  - FIBROADENOMA OF BREAST [None]
  - FIBROCYSTIC BREAST DISEASE [None]
